FAERS Safety Report 21157853 (Version 1)
Quarter: 2022Q3

REPORT INFORMATION
  Report Type: Spontaneous
  Country: US (occurrence: None)
  Receive Date: 20220801
  Receipt Date: 20220801
  Transmission Date: 20221026
  Serious: Yes (Life-Threatening, Hospitalization)
  Sender: FDA-Public Use
  Company Number: None

PATIENT

DRUGS (1)
  1. SEROQUEL [Suspect]
     Active Substance: QUETIAPINE FUMARATE
     Dosage: FREQUENCY : AT BEDTIME;?

REACTIONS (5)
  - Anxiety [None]
  - Agitation [None]
  - Anger [None]
  - Focal dyscognitive seizures [None]
  - Imprisonment [None]

NARRATIVE: CASE EVENT DATE: 20180510
